FAERS Safety Report 9961359 (Version 5)
Quarter: 2019Q1

REPORT INFORMATION
  Report Type: Spontaneous
  Country: US (occurrence: US)
  Receive Date: 20140305
  Receipt Date: 20190308
  Transmission Date: 20190418
  Serious: Yes (Hospitalization, Other)
  Sender: FDA-Public Use
  Company Number: US-JNJFOC-20140216646

PATIENT
  Age: 70 Year
  Sex: Female
  Weight: 77.11 kg

DRUGS (21)
  1. NEXIUM [Concomitant]
     Active Substance: ESOMEPRAZOLE MAGNESIUM
     Indication: PROPHYLAXIS
     Route: 065
  2. XARELTO [Suspect]
     Active Substance: RIVAROXABAN
     Indication: THROMBOSIS
     Route: 048
     Dates: start: 201304, end: 2013
  3. DIGOXIN. [Suspect]
     Active Substance: DIGOXIN
     Indication: ARRHYTHMIA PROPHYLAXIS
     Route: 048
  4. XARELTO [Suspect]
     Active Substance: RIVAROXABAN
     Indication: PULMONARY EMBOLISM
     Route: 048
     Dates: start: 201309
  5. XARELTO [Suspect]
     Active Substance: RIVAROXABAN
     Indication: PULMONARY THROMBOSIS
     Route: 048
     Dates: start: 201304, end: 2013
  6. XARELTO [Suspect]
     Active Substance: RIVAROXABAN
     Indication: THROMBOSIS
     Route: 048
     Dates: start: 2013, end: 2013
  7. XARELTO [Suspect]
     Active Substance: RIVAROXABAN
     Indication: PULMONARY THROMBOSIS
     Route: 048
     Dates: start: 201304, end: 201308
  8. XARELTO [Suspect]
     Active Substance: RIVAROXABAN
     Indication: CONTUSION
     Route: 048
     Dates: start: 201304, end: 201308
  9. XARELTO [Suspect]
     Active Substance: RIVAROXABAN
     Indication: THROMBOSIS
     Route: 048
     Dates: start: 201304, end: 201308
  10. XARELTO [Suspect]
     Active Substance: RIVAROXABAN
     Indication: PULMONARY THROMBOSIS
     Route: 048
     Dates: start: 201309
  11. XARELTO [Suspect]
     Active Substance: RIVAROXABAN
     Indication: CONTUSION
     Route: 048
     Dates: start: 201309
  12. DIGOXIN. [Suspect]
     Active Substance: DIGOXIN
     Indication: ATRIAL FIBRILLATION
     Route: 048
  13. LOPRESSOR [Concomitant]
     Active Substance: METOPROLOL TARTRATE
     Indication: HYPERTENSION
     Route: 048
     Dates: start: 201308
  14. AMIODARONE [Concomitant]
     Active Substance: AMIODARONE
     Route: 065
     Dates: start: 2016
  15. XARELTO [Suspect]
     Active Substance: RIVAROXABAN
     Indication: CONTUSION
     Route: 048
     Dates: start: 2013, end: 2013
  16. XARELTO [Suspect]
     Active Substance: RIVAROXABAN
     Indication: PULMONARY EMBOLISM
     Route: 048
     Dates: start: 2013, end: 2013
  17. XARELTO [Suspect]
     Active Substance: RIVAROXABAN
     Indication: PULMONARY THROMBOSIS
     Route: 048
     Dates: start: 2013, end: 2013
  18. XARELTO [Suspect]
     Active Substance: RIVAROXABAN
     Indication: PULMONARY EMBOLISM
     Route: 048
     Dates: start: 201304, end: 201308
  19. XARELTO [Suspect]
     Active Substance: RIVAROXABAN
     Indication: THROMBOSIS
     Route: 048
     Dates: start: 201309
  20. XARELTO [Suspect]
     Active Substance: RIVAROXABAN
     Indication: PULMONARY EMBOLISM
     Route: 048
     Dates: start: 201304, end: 2013
  21. XARELTO [Suspect]
     Active Substance: RIVAROXABAN
     Indication: CONTUSION
     Route: 048
     Dates: start: 201304, end: 2013

REACTIONS (10)
  - Headache [Not Recovered/Not Resolved]
  - Inappropriate schedule of product administration [Unknown]
  - Gastrooesophageal reflux disease [Not Recovered/Not Resolved]
  - Irritable bowel syndrome [Not Recovered/Not Resolved]
  - Dehydration [Recovered/Resolved]
  - Factor V Leiden mutation [Unknown]
  - Atrial fibrillation [Unknown]
  - Cardioactive drug level increased [Recovered/Resolved]
  - Dizziness [Not Recovered/Not Resolved]
  - Tooth infection [Recovered/Resolved]

NARRATIVE: CASE EVENT DATE: 2013
